FAERS Safety Report 7670987-2 (Version None)
Quarter: 2011Q3

REPORT INFORMATION
  Report Type: 
  Country: None (occurrence: None)
  Receive Date: 20110809
  Receipt Date: 20110727
  Transmission Date: 20111222
  Serious: Yes (Hospitalization, Other)
  Sender: FDA-Public Use
  Company Number: US-ELI_LILLY_AND_COMPANY-US201005000634

PATIENT
  Sex: Male

DRUGS (8)
  1. MULTI-VITAMIN [Concomitant]
  2. ACTOS [Concomitant]
     Dosage: 45 MG, QD
  3. BYETTA [Suspect]
     Indication: TYPE 2 DIABETES MELLITUS
     Dosage: 10 UG, BID
     Route: 058
     Dates: start: 20050801, end: 20071201
  4. FOLIC ACID [Concomitant]
  5. PRAVACHOL [Concomitant]
     Dosage: 40 MG, QD
  6. METFORMIN HCL [Concomitant]
     Dosage: 1 G, BID
  7. AMARYL [Concomitant]
     Dosage: 4 MG, QD
  8. DYNACIRC [Concomitant]
     Dosage: 10 MG, QD

REACTIONS (4)
  - RENAL FAILURE ACUTE [None]
  - PANCREATITIS [None]
  - RENAL FAILURE CHRONIC [None]
  - RENAL FAILURE [None]
